FAERS Safety Report 4961955-X (Version None)
Quarter: 2006Q2

REPORT INFORMATION
  Report Type: 
  Country: None (occurrence: None)
  Receive Date: 20060403
  Receipt Date: 20060403
  Transmission Date: 20061013
  Serious: Yes (Hospitalization, Other)
  Sender: FDA-Public Use
  Company Number: None

PATIENT
  Sex: Male
  Weight: 98.2 kg

DRUGS (9)
  1. CYTARABINE [Suspect]
     Indication: BURKITT'S LYMPHOMA
     Dosage: 4200 MG
     Dates: start: 20060225, end: 20060226
  2. CYTARABINE [Suspect]
     Indication: LEUKAEMIA
     Dosage: 4200 MG
     Dates: start: 20060225, end: 20060226
  3. CYTARABINE [Suspect]
     Indication: BURKITT'S LYMPHOMA
     Dosage: 4200 MG
     Dates: start: 20060222
  4. CYTARABINE [Suspect]
     Indication: LEUKAEMIA
     Dosage: 4200 MG
     Dates: start: 20060222
  5. ETOPOSIDE [Suspect]
     Dosage: 336 MG
     Dates: start: 20060225, end: 20060226
  6. IFOSFAMIDE [Suspect]
     Dosage: 8400 MG
     Dates: start: 20060222, end: 20060226
  7. MESNA [Suspect]
     Dosage: 6300 MG
     Dates: start: 20060222, end: 20060226
  8. METHOTREXATE [Suspect]
     Dosage: 3150 MG
     Dates: start: 20060222, end: 20060222
  9. VINCRISTINE SULFATE [Suspect]
     Dosage: 2 MG
     Dates: start: 20060222, end: 20060222

REACTIONS (7)
  - DEEP VEIN THROMBOSIS [None]
  - DIFFICULTY IN WALKING [None]
  - FEBRILE NEUTROPENIA [None]
  - HYPERCALCAEMIA [None]
  - MUCOSAL INFLAMMATION [None]
  - PAIN IN EXTREMITY [None]
  - PERFORMANCE STATUS DECREASED [None]
